FAERS Safety Report 22387737 (Version 2)
Quarter: 2023Q2

REPORT INFORMATION
  Report Type: Report from Study
  Country: EG (occurrence: EG)
  Receive Date: 20230531
  Receipt Date: 20230607
  Transmission Date: 20230721
  Serious: Yes (Other)
  Sender: FDA-Public Use
  Company Number: EG-002147023-NVSC2023EG122254

PATIENT
  Age: 9 Year
  Sex: Male

DRUGS (2)
  1. OMNITROPE [Suspect]
     Active Substance: SOMATROPIN
     Indication: Growth hormone deficiency
     Dosage: 0.73 MG, QD
     Route: 058
     Dates: start: 20210601
  2. OMNITROPE [Suspect]
     Active Substance: SOMATROPIN
     Dosage: 1 MG, QD (END DATE SINCE TWO MONTHS AGO)
     Route: 058

REACTIONS (7)
  - Hyperglycaemia [Recovered/Resolved]
  - Iron deficiency [Not Recovered/Not Resolved]
  - Poor quality device used [Recovered/Resolved]
  - Wrong technique in device usage process [Recovered/Resolved]
  - Multiple use of single-use product [Recovered/Resolved]
  - Incorrect dose administered [Recovered/Resolved]
  - Drug ineffective [Recovered/Resolved]

NARRATIVE: CASE EVENT DATE: 20210601
